FAERS Safety Report 5544294-8 (Version None)
Quarter: 2007Q4

REPORT INFORMATION
  Report Type: 
  Country: None (occurrence: None)
  Receive Date: 20071210
  Receipt Date: 20061130
  Transmission Date: 20080405
  Serious: No
  Sender: FDA-Public Use
  Company Number: US-AMGEN-KDL202092

PATIENT
  Sex: Female

DRUGS (3)
  1. ENBREL [Suspect]
     Indication: RHEUMATOID ARTHRITIS
     Route: 058
     Dates: start: 20050819
  2. ARAVA [Concomitant]
     Dates: start: 20061101
  3. METHOTREXATE [Concomitant]

REACTIONS (2)
  - INCREASED TENDENCY TO BRUISE [None]
  - INJECTION SITE IRRITATION [None]
